FAERS Safety Report 11371778 (Version 2)
Quarter: 2015Q3

REPORT INFORMATION
  Report Type: Report from Study
  Country: PL (occurrence: PL)
  Receive Date: 20150812
  Receipt Date: 20150827
  Transmission Date: 20151125
  Serious: Yes (Death, Other)
  Sender: FDA-Public Use
  Company Number: PL-BAXTER-2015BAX043633

PATIENT
  Age: 3 Year
  Sex: Male

DRUGS (7)
  1. THIOPENTAL [Suspect]
     Active Substance: THIOPENTAL
     Indication: SEDATIVE THERAPY
     Route: 065
     Dates: start: 200911
  2. DOBUTAMINE [Suspect]
     Active Substance: DOBUTAMINE\DOBUTAMINE HYDROCHLORIDE
     Indication: POOR PERIPHERAL CIRCULATION
     Route: 065
     Dates: start: 200911
  3. HEPARIN [Suspect]
     Active Substance: HEPARIN SODIUM
     Indication: PRODUCT USED FOR UNKNOWN INDICATION
     Route: 065
     Dates: start: 200911
  4. FUROSEMIDE. [Suspect]
     Active Substance: FUROSEMIDE
     Indication: PRODUCT USED FOR UNKNOWN INDICATION
     Route: 065
     Dates: start: 200911
  5. MANNITOL 20% BAXTER [Suspect]
     Active Substance: MANNITOL
     Indication: PRODUCT USED FOR UNKNOWN INDICATION
     Route: 065
     Dates: start: 200911
  6. DOPAMINE [Suspect]
     Active Substance: DOPAMINE\DOPAMINE HYDROCHLORIDE
     Indication: POOR PERIPHERAL CIRCULATION
     Route: 065
     Dates: start: 200911
  7. INJECTIO GLUCOSI 5% BAXTER [Suspect]
     Active Substance: DEXTROSE
     Indication: PRODUCT USED FOR UNKNOWN INDICATION
     Route: 042
     Dates: start: 200911

REACTIONS (13)
  - Neurological decompensation [Not Recovered/Not Resolved]
  - Hypothermia [None]
  - Brain oedema [Not Recovered/Not Resolved]
  - Brain death [Fatal]
  - Brain contusion [None]
  - Condition aggravated [Not Recovered/Not Resolved]
  - Tachycardia [None]
  - Pupillary reflex impaired [None]
  - Areflexia [None]
  - Mydriasis [None]
  - Bradycardia [None]
  - Subarachnoid haemorrhage [None]
  - Intraventricular haemorrhage [None]

NARRATIVE: CASE EVENT DATE: 200911
